FAERS Safety Report 7760996-7 (Version None)
Quarter: 2011Q3

REPORT INFORMATION
  Report Type: 
  Country: None (occurrence: None)
  Receive Date: 20110920
  Receipt Date: 20110909
  Transmission Date: 20111222
  Serious: Yes (Hospitalization)
  Sender: FDA-Public Use
  Company Number: US-BIOGENIDEC-2011BI035010

PATIENT
  Age: 35 Year
  Sex: Female

DRUGS (5)
  1. TYSABRI [Suspect]
     Indication: MULTIPLE SCLEROSIS
     Route: 042
     Dates: start: 20081201
  2. PLAVIX [Concomitant]
     Indication: ANTICOAGULANT THERAPY
     Dates: start: 20110901
  3. LIPITOR [Concomitant]
     Indication: BLOOD CHOLESTEROL
     Dates: start: 20110901
  4. LOPRESSOR [Concomitant]
     Indication: HEART RATE DECREASED
     Dates: start: 20110901
  5. ASPIRIN [Concomitant]
     Indication: ANTICOAGULANT THERAPY
     Dates: start: 20110901

REACTIONS (2)
  - CORONARY ARTERY DISSECTION [None]
  - WHITE BLOOD CELL COUNT INCREASED [None]
